FAERS Safety Report 6372140-1 (Version None)
Quarter: 2009Q3

REPORT INFORMATION
  Report Type: 
  Country: None (occurrence: None)
  Receive Date: 20090917
  Receipt Date: 20090915
  Transmission Date: 20100115
  Serious: Yes (Other)
  Sender: FDA-Public Use
  Company Number: 2009SP024052

PATIENT
  Age: 54 Year
  Sex: Male

DRUGS (3)
  1. PEG-INTRON [Suspect]
     Indication: HEPATIC CIRRHOSIS
     Dosage: 70 MCG; QW; SC
     Route: 058
     Dates: start: 20080402, end: 20090225
  2. RIBAVIRIN [Suspect]
     Indication: HEPATIC CIRRHOSIS
     Dosage: 400 MG; BID; PO
     Route: 048
     Dates: start: 20080402, end: 20090303
  3. RIBAVIRIN [Suspect]

REACTIONS (1)
  - HEPATIC NEOPLASM MALIGNANT [None]
